FAERS Safety Report 12920360 (Version 1)
Quarter: 2016Q4

REPORT INFORMATION
  Report Type: Spontaneous
  Country: US (occurrence: US)
  Receive Date: 20161104
  Receipt Date: 20161104
  Transmission Date: 20170207
  Serious: No
  Sender: FDA-Public Use
  Company Number: None

PATIENT
  Age: 54 Year
  Sex: Male

DRUGS (1)
  1. DOFETILIDE. [Suspect]
     Active Substance: DOFETILIDE
     Indication: ATRIAL FIBRILLATION
     Route: 048
     Dates: start: 20160707, end: 20161004

REACTIONS (8)
  - Hot flush [None]
  - Malaise [None]
  - Tachycardia [None]
  - Arrhythmia [None]
  - Hyperhidrosis [None]
  - Anxiety [None]
  - Headache [None]
  - Dyspepsia [None]

NARRATIVE: CASE EVENT DATE: 20160708
